FAERS Safety Report 15776599 (Version 1)
Quarter: 2018Q4

REPORT INFORMATION
  Report Type: Spontaneous
  Country: US (occurrence: US)
  Receive Date: 20181231
  Receipt Date: 20181231
  Transmission Date: 20190205
  Serious: No
  Sender: FDA-Public Use
  Company Number: US-PFIZER INC-2015290829

PATIENT
  Age: 84 Year
  Sex: Female
  Weight: 86 kg

DRUGS (10)
  1. FLONASE [Concomitant]
     Active Substance: FLUTICASONE PROPIONATE
     Dosage: 2 DF, DAILY (2 SPRAYS)
     Route: 045
  2. ZOLOFT [Concomitant]
     Active Substance: SERTRALINE HYDROCHLORIDE
     Dosage: 100 MG, DAILY
     Route: 048
  3. CALCIUM +VIT D [Concomitant]
     Active Substance: CALCIUM\VITAMIN D
     Dosage: UNK UNK, 2X/DAY (CALCIUM: 200 MG, COLECALCIFEROL: 250 INT-UNIT)
     Route: 048
  4. ALBUTEROL CFC FREE [Concomitant]
     Indication: ASTHMA
     Dosage: 2 DF, AS NEEDED (2 PUFFS RESP INHALATION FOUR TIMES DAILY)
     Route: 055
  5. BIOTIN [Concomitant]
     Active Substance: BIOTIN
     Dosage: UNK
  6. LOVASTATIN. [Concomitant]
     Active Substance: LOVASTATIN
     Dosage: 40 MG, 1X/DAY (EVERY BEDTIME )
     Route: 048
  7. ALEVE [Concomitant]
     Active Substance: NAPROXEN SODIUM
     Dosage: UNK UNK, 3X/DAY (EVERY 8 HOURS)
     Route: 048
  8. AROMASIN [Suspect]
     Active Substance: EXEMESTANE
     Indication: BREAST CANCER FEMALE
     Dosage: 25 MG, DAILY
     Route: 048
     Dates: start: 2014, end: 2018
  9. BUDESONIDE/FORMOTEROL [Concomitant]
     Dosage: 2 DF, 2X/DAY (2 PUFFS MORNING AND EVENING USE WITH SPACER CHAMBER RINSE MOUTH AND THROAT AFTER USE)
     Route: 055
  10. DILTIAZEM. [Concomitant]
     Active Substance: DILTIAZEM
     Dosage: 60 MG, 2X/DAY (EVERY 12 HOURS )
     Route: 048

REACTIONS (1)
  - Neoplasm progression [Unknown]

NARRATIVE: CASE EVENT DATE: 2018
